FAERS Safety Report 24438659 (Version 1)
Quarter: 2024Q4

REPORT INFORMATION
  Report Type: Spontaneous
  Country: US (occurrence: US)
  Receive Date: 20241015
  Receipt Date: 20241015
  Transmission Date: 20250115
  Serious: Yes (Life-Threatening, Hospitalization)
  Sender: SANDOZ
  Company Number: US-MLMSERVICE-20241008-PI204557-00147-1

PATIENT
  Age: 86 Year
  Sex: Male

DRUGS (2)
  1. PEGFILGRASTIM [Suspect]
     Active Substance: PEGFILGRASTIM
     Indication: Chronic myelomonocytic leukaemia
     Dosage: ONE DOSE OF PEGFILGRASTIM ON DAY 6 (THE DAY PRIOR TO ADMISSION)
     Route: 065
  2. DECITABINE [Concomitant]
     Active Substance: DECITABINE
     Indication: Chronic myelomonocytic leukaemia
     Dosage: RECENT 5 DAYS CYCLE
     Route: 065

REACTIONS (3)
  - Acute myocardial infarction [Unknown]
  - Hyperviscosity syndrome [Unknown]
  - Neutrophilia [Unknown]
